FAERS Safety Report 10624696 (Version 3)
Quarter: 2014Q4

REPORT INFORMATION
  Report Type: Report from Study
  Country: JP (occurrence: JP)
  Receive Date: 20141204
  Receipt Date: 20141218
  Transmission Date: 20150529
  Serious: Yes (Death, Hospitalization)
  Sender: FDA-Public Use
  Company Number: JP-ROCHE-1497521

PATIENT
  Age: 40 Year
  Sex: Female
  Weight: 44.6 kg

DRUGS (18)
  1. 5-FLUOROURACIL [Suspect]
     Active Substance: FLUOROURACIL
     Indication: HER-2 POSITIVE BREAST CANCER
     Dosage: LAST DOSE PRIOR TO SAE ONSET:18/JUL/2014
     Route: 065
     Dates: start: 20140516
  2. EPIRUBICIN [Suspect]
     Active Substance: EPIRUBICIN
     Indication: HER-2 POSITIVE BREAST CANCER
     Dosage: LAST DOSE PRIOR TO SAE ONSET:18/JUL/2014
     Route: 065
     Dates: start: 20140516
  3. SENNOSIDE [Concomitant]
     Active Substance: SENNOSIDES
     Route: 065
     Dates: start: 20140518
  4. REBAMIPIDE [Concomitant]
     Active Substance: REBAMIPIDE
     Dosage: PREVENTION GASTRIC MUCOSA
     Route: 065
     Dates: start: 20140612
  5. BUSCOPAN [Concomitant]
     Active Substance: BUTYLSCOPOLAMINE BROMIDE
     Route: 065
     Dates: start: 20140916
  6. MAGLAX [Concomitant]
     Active Substance: MAGNESIUM OXIDE
     Route: 065
     Dates: start: 20140520
  7. BESOFTEN [Concomitant]
     Active Substance: SODIUM ALGINATE
     Route: 065
     Dates: start: 20141113
  8. PERTUZUMAB [Suspect]
     Active Substance: PERTUZUMAB
     Indication: HER-2 POSITIVE BREAST CANCER
     Dosage: LOADING DOSE
     Route: 042
     Dates: start: 20140815
  9. PERTUZUMAB [Suspect]
     Active Substance: PERTUZUMAB
     Dosage: MOST RECENT DOSE:14/NOV/2014
     Route: 042
  10. LOBU [Concomitant]
     Active Substance: LOBUCAVIR
     Route: 065
     Dates: start: 20140317
  11. TAKEPRON OD [Concomitant]
     Active Substance: LANSOPRAZOLE
     Dosage: DRUG REPORTED AS: TAKEPRON OD TABLETS 15
     Route: 065
     Dates: start: 20140909
  12. TRASTUZUMAB EMTANSINE [Suspect]
     Active Substance: ADO-TRASTUZUMAB EMTANSINE
     Indication: HER-2 POSITIVE BREAST CANCER
     Dosage: MOST RECENT DOSE:14/NOV/2014
     Route: 042
     Dates: start: 20140815
  13. DEXALTIN [Concomitant]
     Active Substance: DEXAMETHASONE
     Dosage: 1MG/G
     Route: 048
     Dates: start: 20140612
  14. ZOLPIDEM TARTRATE. [Concomitant]
     Active Substance: ZOLPIDEM TARTRATE
     Route: 065
     Dates: start: 20140626
  15. CYCLOPHOSPHAMIDE. [Suspect]
     Active Substance: CYCLOPHOSPHAMIDE
     Indication: HER-2 POSITIVE BREAST CANCER
     Route: 065
     Dates: start: 20140516
  16. NEGMIN GARGLE [Concomitant]
     Route: 065
     Dates: start: 20140612
  17. REBAMIPIDE [Concomitant]
     Active Substance: REBAMIPIDE
     Route: 065
     Dates: start: 20140905
  18. URSODEOXYCHOLIC ACID [Concomitant]
     Active Substance: URSODIOL
     Route: 065
     Dates: start: 20140909

REACTIONS (2)
  - Platelet count decreased [Not Recovered/Not Resolved]
  - Depression [Fatal]

NARRATIVE: CASE EVENT DATE: 20141113
